FAERS Safety Report 22071504 (Version 1)
Quarter: 2023Q1

REPORT INFORMATION
  Report Type: Spontaneous
  Country: JP (occurrence: JP)
  Receive Date: 20230307
  Receipt Date: 20230307
  Transmission Date: 20230418
  Serious: Yes (Hospitalization)
  Sender: FDA-Public Use
  Company Number: JP-TEVA-2023-JP-2863341

PATIENT
  Age: 39 Year
  Sex: Female

DRUGS (5)
  1. PREDNISOLONE [Suspect]
     Active Substance: PREDNISOLONE
     Indication: Takayasu^s arteritis
     Dosage: 12 MILLIGRAM DAILY; ONCE A DAY
     Route: 065
  2. PREDNISOLONE [Suspect]
     Active Substance: PREDNISOLONE
     Dosage: 7 MILLIGRAM DAILY; ONCE A DAY
     Route: 065
  3. TOCILIZUMAB [Suspect]
     Active Substance: TOCILIZUMAB
     Indication: Takayasu^s arteritis
     Route: 065
  4. CYCLOSPORINE [Concomitant]
     Active Substance: CYCLOSPORINE
     Indication: Takayasu^s arteritis
     Dosage: 100 MILLIGRAM DAILY; ONCE A DAY
     Route: 065
  5. METHOTREXATE [Concomitant]
     Active Substance: METHOTREXATE
     Indication: Takayasu^s arteritis
     Dosage: 6 MG ONCE A WEEK
     Route: 065

REACTIONS (3)
  - Dysbiosis [Unknown]
  - Endocarditis [Unknown]
  - Staphylococcal infection [Unknown]
